FAERS Safety Report 9671012 (Version 1)
Quarter: 2013Q4

REPORT INFORMATION
  Report Type: Spontaneous
  Country: US (occurrence: None)
  Receive Date: 20131105
  Receipt Date: 20131105
  Transmission Date: 20140711
  Serious: No
  Sender: FDA-Public Use
  Company Number: None

PATIENT
  Age: 48 Year
  Sex: Female

DRUGS (1)
  1. ALBUTEROL SULFATE [Suspect]
     Indication: BRONCHIECTASIS
     Dosage: 1 VIAL TEICE A DAY
     Route: 055

REACTIONS (3)
  - Drug ineffective [None]
  - Throat irritation [None]
  - Bronchial irritation [None]
